FAERS Safety Report 9155708 (Version 1)
Quarter: 2013Q1

REPORT INFORMATION
  Report Type: Spontaneous
  Country: TW (occurrence: TW)
  Receive Date: 20130311
  Receipt Date: 20130311
  Transmission Date: 20140127
  Serious: Yes (Death)
  Sender: FDA-Public Use
  Company Number: TW-BAXTER-2013BAX008335

PATIENT
  Sex: 0

DRUGS (2)
  1. DIANEAL LOW CALCIUM (2.5 MEQ/L) PD SOLUTION WITH 1.5% DEXTROSE ^BAXTER [Suspect]
     Indication: PERITONEAL DIALYSIS
     Route: 033
  2. DIANEAL LOW CALCIUM (2.5 MEQ/L) PD SOLUTION WITH 2.5% DEXTROSE ^BAXTER [Suspect]
     Indication: PERITONEAL DIALYSIS
     Route: 033

REACTIONS (1)
  - Sepsis [Fatal]
